FAERS Safety Report 7284896-4 (Version None)
Quarter: 2011Q1

REPORT INFORMATION
  Report Type: 
  Country: None (occurrence: None)
  Receive Date: 20110204
  Receipt Date: 20110204
  Transmission Date: 20110831
  Serious: Yes (Other)
  Sender: FDA-Public Use
  Company Number: None

PATIENT
  Age: 65 Year
  Sex: Female
  Weight: 83.0083 kg

DRUGS (1)
  1. PROLIA [Suspect]
     Indication: OSTEOPOROSIS
     Dosage: 60 MG SC EVERY 6 MONTH
     Route: 058
     Dates: start: 20101028

REACTIONS (3)
  - PAIN IN JAW [None]
  - CHEST PAIN [None]
  - PAIN [None]
